FAERS Safety Report 8105798-7 (Version None)
Quarter: 2012Q1

REPORT INFORMATION
  Report Type: 
  Country: None (occurrence: None)
  Receive Date: 20120201
  Receipt Date: 20120130
  Transmission Date: 20120608
  Serious: No
  Sender: FDA-Public Use
  Company Number: US-PFIZER INC-2012025444

PATIENT
  Sex: Female
  Weight: 63 kg

DRUGS (2)
  1. PROBIOTICS [Concomitant]
     Dosage: UNK
  2. LYRICA [Suspect]
     Indication: ANXIETY
     Dosage: 25 MG, 2X/DAY
     Route: 048
     Dates: start: 20120122

REACTIONS (5)
  - EYE DISORDER [None]
  - STRESS [None]
  - PAIN [None]
  - HEADACHE [None]
  - ARTHRITIS [None]
